FAERS Safety Report 9006166 (Version 3)
Quarter: 2014Q1

REPORT INFORMATION
  Report Type: Spontaneous
  Country: US (occurrence: US)
  Receive Date: 20130110
  Receipt Date: 20140122
  Transmission Date: 20141002
  Serious: Yes (Other)
  Sender: FDA-Public Use
  Company Number: US-AMGEN-USASP2013000847

PATIENT
  Age: 56 Year
  Sex: Female

DRUGS (3)
  1. ENBREL [Suspect]
     Indication: PSORIATIC ARTHROPATHY
     Dosage: 50 MG, QWK
     Route: 058
     Dates: start: 20121129, end: 201312
  2. ENBREL [Suspect]
     Indication: PSORIASIS
     Dosage: UNK
     Route: 058
  3. HUMIRA [Concomitant]
     Dosage: UNK

REACTIONS (7)
  - Depression [Not Recovered/Not Resolved]
  - Psoriatic arthropathy [Not Recovered/Not Resolved]
  - Dysuria [Recovered/Resolved]
  - Diarrhoea [Not Recovered/Not Resolved]
  - Cystitis [Not Recovered/Not Resolved]
  - Psoriasis [Not Recovered/Not Resolved]
  - Kidney infection [Recovered/Resolved]
